FAERS Safety Report 6998854-8 (Version None)
Quarter: 2010Q3

REPORT INFORMATION
  Report Type: 
  Country: None (occurrence: None)
  Receive Date: 20100920
  Receipt Date: 20100607
  Transmission Date: 20110219
  Serious: No
  Sender: FDA-Public Use
  Company Number: US-ASTRAZENECA-2010SE26467

PATIENT
  Sex: Male

DRUGS (7)
  1. SEROQUEL [Suspect]
     Route: 048
  2. METOPROLOL [Concomitant]
  3. APO MORPHINE, AND HYDROCHLORIDE [Concomitant]
  4. STALEVO 100 [Concomitant]
  5. ARICEPT [Concomitant]
  6. TRIAMHETZ [Concomitant]
  7. TAMSULOSIN HCL [Concomitant]

REACTIONS (2)
  - DRUG DOSE OMISSION [None]
  - INSOMNIA [None]
